FAERS Safety Report 6356526-7 (Version None)
Quarter: 2009Q3

REPORT INFORMATION
  Report Type: 
  Country: None (occurrence: None)
  Receive Date: 20090915
  Receipt Date: 20090908
  Transmission Date: 20100115
  Serious: Yes (Other)
  Sender: FDA-Public Use
  Company Number: D0062826A

PATIENT
  Age: 47 Year

DRUGS (2)
  1. REQUIP [Suspect]
     Indication: RESTLESS LEGS SYNDROME
     Dosage: 2MG PER DAY
     Route: 048
  2. RESTEX [Suspect]
     Indication: RESTLESS LEGS SYNDROME
     Route: 048

REACTIONS (7)
  - BALANCE DISORDER [None]
  - DYSGRAPHIA [None]
  - HYPERHIDROSIS [None]
  - HYPOKINESIA [None]
  - LOCAL SWELLING [None]
  - MUSCLE SPASMS [None]
  - TREMOR [None]
